FAERS Safety Report 16864520 (Version 1)
Quarter: 2019Q3

REPORT INFORMATION
  Report Type: Report from Study
  Country: DE (occurrence: DE)
  Receive Date: 20190928
  Receipt Date: 20190928
  Transmission Date: 20191005
  Serious: Yes (Congenital Anomaly)
  Sender: FDA-Public Use
  Company Number: DE-ACCORD-155990

PATIENT

DRUGS (4)
  1. VALPROIC ACID. [Suspect]
     Active Substance: VALPROIC ACID
     Indication: EPILEPSY
     Dosage: LAST RECEIVED DATE 2013
     Route: 064
     Dates: start: 2013
  2. LEVETIRACETAM. [Suspect]
     Active Substance: LEVETIRACETAM
     Indication: PRODUCT USED FOR UNKNOWN INDICATION
     Dosage: DOSE CHANGED (NOT SPECIFIED)
     Route: 064
     Dates: start: 2013, end: 201312
  3. LEVETIRACETAM. [Suspect]
     Active Substance: LEVETIRACETAM
     Indication: EPILEPSY
     Dosage: LAST RECEIVED DEC-2013
     Route: 064
     Dates: start: 2013
  4. VALPROATE SODIUM. [Suspect]
     Active Substance: VALPROATE SODIUM
     Indication: PRODUCT USED FOR UNKNOWN INDICATION
     Dosage: DOSE CHANGED (NOT SPECIFIED)
     Route: 064
     Dates: start: 2013, end: 2013

REACTIONS (2)
  - Foetal exposure during pregnancy [Unknown]
  - Cleft palate [Unknown]

NARRATIVE: CASE EVENT DATE: 2013
